FAERS Safety Report 11260502 (Version 1)
Quarter: 2015Q3

REPORT INFORMATION
  Report Type: Spontaneous
  Country: CA (occurrence: CA)
  Receive Date: 20150710
  Receipt Date: 20150710
  Transmission Date: 20151125
  Serious: Yes (Other)
  Sender: FDA-Public Use
  Company Number: CA-HOSPIRA-2783049

PATIENT
  Age: 38 Year
  Sex: Female

DRUGS (2)
  1. BENLYSTA [Suspect]
     Active Substance: BELIMUMAB
     Indication: SYSTEMIC LUPUS ERYTHEMATOSUS
     Route: 042
  2. METHOTREXATE [Suspect]
     Active Substance: METHOTREXATE
     Indication: PRODUCT USED FOR UNKNOWN INDICATION
     Route: 058

REACTIONS (17)
  - Arthropathy [Unknown]
  - Fatigue [Unknown]
  - Tooth infection [Unknown]
  - Disability [Unknown]
  - Chills [Unknown]
  - Nausea [Unknown]
  - Somnolence [Unknown]
  - Pain [Unknown]
  - Arthralgia [Unknown]
  - Mydriasis [Unknown]
  - Oropharyngeal pain [Unknown]
  - Malaise [Unknown]
  - Ankle fracture [Unknown]
  - Depressed mood [Unknown]
  - Headache [Unknown]
  - Hyperhidrosis [Unknown]
  - Pyrexia [Unknown]
